FAERS Safety Report 23277777 (Version 1)
Quarter: 2023Q4

REPORT INFORMATION
  Report Type: Spontaneous
  Country: US (occurrence: None)
  Receive Date: 20231207
  Receipt Date: 20231207
  Transmission Date: 20240110
  Serious: Yes (Hospitalization)
  Sender: FDA-Public Use
  Company Number: None

PATIENT
  Age: 74 Year
  Sex: Male
  Weight: 92.5 kg

DRUGS (6)
  1. PACLITAXEL [Suspect]
     Active Substance: PACLITAXEL
     Indication: Lung neoplasm malignant
     Dates: start: 20231026
  2. DIPHENHYDRAMINE [Concomitant]
     Active Substance: DIPHENHYDRAMINE
  3. FAMOTIDINE [Concomitant]
     Active Substance: FAMOTIDINE
  4. DEXAMETHASONE [Concomitant]
     Active Substance: DEXAMETHASONE
  5. Palonestron [Concomitant]
  6. FOSAPREPITANT [Concomitant]
     Active Substance: FOSAPREPITANT

REACTIONS (4)
  - Dizziness [None]
  - Infusion related reaction [None]
  - Arrhythmia [None]
  - Bradycardia [None]

NARRATIVE: CASE EVENT DATE: 20231116
